FAERS Safety Report 9975646 (Version 1)
Quarter: 2014Q1

REPORT INFORMATION
  Report Type: Report from Study
  Country: US (occurrence: US)
  Receive Date: 20140306
  Receipt Date: 20140306
  Transmission Date: 20141002
  Serious: No
  Sender: FDA-Public Use
  Company Number: US-ABBVIE-13P-163-1155969-00

PATIENT
  Age: 71 Year
  Sex: Male

DRUGS (11)
  1. HUMIRA [Suspect]
     Indication: COLITIS ULCERATIVE
     Dates: start: 20130522
  2. HUMIRA [Suspect]
  3. COUMADIN [Concomitant]
     Indication: ARTERIAL OCCLUSIVE DISEASE
     Dosage: 5MG DAILY BY MOUTH
     Route: 048
  4. SERTRALINE [Concomitant]
     Indication: PRODUCT USED FOR UNKNOWN INDICATION
     Dosage: 100MG BY MOUTH DAILY
     Route: 048
  5. LABATELOL [Concomitant]
     Indication: HYPERTENSION
     Dosage: BY MOUTH
     Route: 048
  6. DEMADEX [Concomitant]
     Indication: DIURETIC THERAPY
     Dosage: 20MG DAILY BY MOUTH
     Route: 048
  7. ISOSORBIDE [Concomitant]
     Indication: CARDIAC DISORDER
     Dosage: BY MOUTH EVERYDAY
     Route: 048
  8. ATORVASTATIN [Concomitant]
     Indication: BLOOD CHOLESTEROL INCREASED
     Dosage: 40MG BY MOUTH DAILY
     Route: 048
  9. LIALDA [Concomitant]
     Indication: COLITIS ULCERATIVE
     Dosage: 1.2MG BY MOUTH EVERYDAY
     Route: 048
  10. MVI [Concomitant]
     Indication: VITAMIN SUPPLEMENTATION
     Dosage: BY MOUTH
  11. POTASSIUM [Concomitant]
     Indication: DIURETIC THERAPY
     Dosage: BY MOUTH EVERYDAY
     Route: 048

REACTIONS (4)
  - Abdominal pain [Not Recovered/Not Resolved]
  - Defaecation urgency [Not Recovered/Not Resolved]
  - Diarrhoea [Not Recovered/Not Resolved]
  - Drug ineffective [Not Recovered/Not Resolved]
